FAERS Safety Report 9874920 (Version 1)
Quarter: 2014Q1

REPORT INFORMATION
  Report Type: Spontaneous
  Country: US (occurrence: None)
  Receive Date: 20140204
  Receipt Date: 20140204
  Transmission Date: 20141002
  Serious: Yes (Death)
  Sender: FDA-Public Use
  Company Number: NSR_01409_2014

PATIENT
  Age: 77 Year
  Sex: Female

DRUGS (3)
  1. TRAMADOL [Suspect]
  2. SMOKELESS CIGARETTE [Suspect]
     Route: 055
  3. CARBON MONOXIDE [Suspect]
     Indication: PRODUCT USED FOR UNKNOWN INDICATION
     Route: 055

REACTIONS (1)
  - Completed suicide [None]
